FAERS Safety Report 21701090 (Version 1)
Quarter: 2022Q4

REPORT INFORMATION
  Report Type: Spontaneous
  Country: US (occurrence: None)
  Receive Date: 20221207
  Receipt Date: 20221207
  Transmission Date: 20230113
  Serious: No
  Sender: FDA-Public Use
  Company Number: None

PATIENT
  Sex: Female

DRUGS (1)
  1. SPRINJENE NATURAL SENSITIVITY RELIEF [Suspect]
     Active Substance: POTASSIUM NITRATE\SODIUM MONOFLUOROPHOSPHATE
     Indication: Hyperaesthesia teeth

REACTIONS (4)
  - Product lot number issue [None]
  - Product packaging issue [None]
  - Product use in unapproved indication [None]
  - Manufacturing laboratory analytical testing issue [None]

NARRATIVE: CASE EVENT DATE: 20221130
